FAERS Safety Report 17549732 (Version 1)
Quarter: 2020Q1

REPORT INFORMATION
  Report Type: Spontaneous
  Country: FR (occurrence: FR)
  Receive Date: 20200317
  Receipt Date: 20200317
  Transmission Date: 20200409
  Serious: Yes (Other)
  Sender: FDA-Public Use
  Company Number: FR-MYLANLABS-2020M1027000

PATIENT
  Age: 82 Year
  Sex: Male
  Weight: 52.2 kg

DRUGS (3)
  1. GLUCOSE                            /00203503/ [Suspect]
     Active Substance: DEXTROSE MONOHYDRATE
     Indication: DEHYDRATION
     Dosage: 1500 MILLILITER
     Route: 041
     Dates: start: 20191227, end: 20191228
  2. SERESTA [Suspect]
     Active Substance: OXAZEPAM
     Indication: PROPHYLAXIS
     Dosage: UNK
     Route: 048
     Dates: start: 20191227, end: 20200103
  3. LANSOPRAZOLE. [Suspect]
     Active Substance: LANSOPRAZOLE
     Indication: GASTRITIS PROPHYLAXIS
     Dosage: 15 MILLIGRAM, QD
     Route: 048
     Dates: start: 20191228, end: 20200123

REACTIONS (1)
  - Hyponatraemia [Recovered/Resolved]

NARRATIVE: CASE EVENT DATE: 20200101
